FAERS Safety Report 19808288 (Version 1)
Quarter: 2021Q3

REPORT INFORMATION
  Report Type: Spontaneous
  Country: US (occurrence: US)
  Receive Date: 20210908
  Receipt Date: 20210908
  Transmission Date: 20211014
  Serious: No
  Sender: FDA-Public Use
  Company Number: US-ELI_LILLY_AND_COMPANY-US202109002873

PATIENT
  Age: 37 Year
  Sex: Male

DRUGS (3)
  1. EMGALITY [Suspect]
     Active Substance: GALCANEZUMAB-GNLM
     Indication: PRODUCT USED FOR UNKNOWN INDICATION
     Dosage: 120 MG, UNKNOWN
     Route: 065
     Dates: start: 202105
  2. SUMATRIPTAN. [Concomitant]
     Active Substance: SUMATRIPTAN
     Indication: PRODUCT USED FOR UNKNOWN INDICATION
  3. DIVALPROEX [Concomitant]
     Active Substance: DIVALPROEX SODIUM
     Indication: PRODUCT USED FOR UNKNOWN INDICATION

REACTIONS (3)
  - Injection site injury [Unknown]
  - Product dose omission issue [Unknown]
  - Injection site haemorrhage [Unknown]

NARRATIVE: CASE EVENT DATE: 20210903
